FAERS Safety Report 7875722-0 (Version None)
Quarter: 2011Q4

REPORT INFORMATION
  Report Type: 
  Country: None (occurrence: None)
  Receive Date: 20111031
  Receipt Date: 20111020
  Transmission Date: 20120403
  Serious: Yes (Hospitalization, Other)
  Sender: FDA-Public Use
  Company Number: US-BAYER-2011-028770

PATIENT
  Age: 18 Year
  Sex: Female
  Weight: 59.864 kg

DRUGS (9)
  1. CYTOTEC [Concomitant]
  2. CYPROHEPTADINE HCL [Concomitant]
     Indication: ABDOMINAL PAIN UPPER
     Dosage: 4 MG, UNK
     Route: 048
  3. AZITHROMYCIN [Concomitant]
  4. FLUCONAZOLE [Concomitant]
  5. NEXIUM [Concomitant]
     Dosage: 40 MG, QD
     Route: 048
  6. ZOLOFT [Concomitant]
     Indication: ANXIETY
     Dosage: 75 MG, QD
     Route: 048
     Dates: start: 20090201
  7. XANAX [Concomitant]
     Indication: ANXIETY
     Dosage: 0.25 MG, UNK
     Route: 048
  8. YAZ [Suspect]
     Indication: ACNE
     Dosage: UNK
     Dates: start: 20080601, end: 20091201
  9. YAZ [Suspect]
     Indication: DYSMENORRHOEA

REACTIONS (5)
  - MENTAL DISORDER [None]
  - GALLBLADDER DISORDER [None]
  - CHOLECYSTITIS CHRONIC [None]
  - BILIARY DYSKINESIA [None]
  - ANXIETY [None]
